FAERS Safety Report 5360017-X (Version None)
Quarter: 2007Q2

REPORT INFORMATION
  Report Type: 
  Country: None (occurrence: None)
  Receive Date: 20070530
  Receipt Date: 20070201
  Transmission Date: 20071010
  Serious: No
  Sender: FDA-Public Use
  Company Number: 2007PV029412

PATIENT
  Age: 60 Year
  Sex: Female

DRUGS (4)
  1. BYETTA [Suspect]
     Indication: DIABETES MELLITUS NON-INSULIN-DEPENDENT
     Dosage: 10 MCG; BID; SC, 10 MCG; BID; SC, 5 MCG; BID; SC
     Route: 058
     Dates: start: 20050901, end: 20051001
  2. BYETTA [Suspect]
     Indication: DIABETES MELLITUS NON-INSULIN-DEPENDENT
     Dosage: 10 MCG; BID; SC, 10 MCG; BID; SC, 5 MCG; BID; SC
     Route: 058
     Dates: start: 20051001, end: 20061001
  3. BYETTA [Suspect]
     Indication: DIABETES MELLITUS NON-INSULIN-DEPENDENT
     Dosage: 10 MCG; BID; SC, 10 MCG; BID; SC, 5 MCG; BID; SC
     Route: 058
     Dates: start: 20061001
  4. METAGLIP [Concomitant]

REACTIONS (7)
  - BLOOD GLUCOSE INCREASED [None]
  - DIZZINESS [None]
  - INJECTION SITE BRUISING [None]
  - INJECTION SITE INFECTION [None]
  - INJECTION SITE PAIN [None]
  - NASOPHARYNGITIS [None]
  - NAUSEA [None]
